FAERS Safety Report 6979809-6 (Version None)
Quarter: 2010Q3

REPORT INFORMATION
  Report Type: 
  Country: None (occurrence: None)
  Receive Date: 20100914
  Receipt Date: 20100907
  Transmission Date: 20110219
  Serious: No
  Sender: FDA-Public Use
  Company Number: US-BIOGENIDEC-2010BI026439

PATIENT
  Sex: Female

DRUGS (1)
  1. TYSABRI [Suspect]
     Indication: MULTIPLE SCLEROSIS
     Route: 042
     Dates: start: 20080228, end: 20100607

REACTIONS (6)
  - ASTHENIA [None]
  - CRYING [None]
  - DEPRESSION [None]
  - EMOTIONAL DISORDER [None]
  - HYPERSOMNIA [None]
  - MEMORY IMPAIRMENT [None]
